FAERS Safety Report 7923146-X (Version None)
Quarter: 2011Q4

REPORT INFORMATION
  Report Type: 
  Country: None (occurrence: None)
  Receive Date: 20111117
  Receipt Date: 20110128
  Transmission Date: 20120403
  Serious: No
  Sender: FDA-Public Use
  Company Number: US-AMGEN-USASP2011005522

PATIENT
  Age: 39 Year
  Sex: Female

DRUGS (1)
  1. ENBREL [Suspect]
     Indication: RHEUMATOID ARTHRITIS
     Dosage: 25 MG, 2 TIMES/WK
     Dates: start: 20100909, end: 20110120

REACTIONS (5)
  - WEIGHT DECREASED [None]
  - INJECTION SITE PRURITUS [None]
  - MYALGIA [None]
  - ASTHENIA [None]
  - INJECTION SITE PAIN [None]
